FAERS Safety Report 6590371-2 (Version None)
Quarter: 2010Q1

REPORT INFORMATION
  Report Type: 
  Country: None (occurrence: None)
  Receive Date: 20100219
  Receipt Date: 20100115
  Transmission Date: 20100710
  Serious: Yes (Death, Hospitalization, Other)
  Sender: FDA-Public Use
  Company Number: HU-ROCHE-594589

PATIENT
  Age: 75 Year
  Sex: Female

DRUGS (5)
  1. BONIVA [Suspect]
     Indication: OSTEOPOROSIS
     Route: 065
  2. SYNCUMAR [Concomitant]
  3. NOOTROPIL [Concomitant]
  4. XANAX [Concomitant]
     Dosage: DOSAGE REPORTED AS ^0.25^
  5. APO-FAMOTIDINE [Concomitant]

REACTIONS (13)
  - ALVEOLAR OSTEITIS [None]
  - ANAEMIA [None]
  - ASTHMA [None]
  - BRONCHITIS [None]
  - CARDIAC FAILURE [None]
  - CONSTIPATION [None]
  - DECREASED APPETITE [None]
  - EOSINOPHILIA [None]
  - HEPATIC FAILURE [None]
  - HYPERTENSION [None]
  - INTERSTITIAL LUNG DISEASE [None]
  - MALIGNANT PALATE NEOPLASM [None]
  - WEIGHT DECREASED [None]
